FAERS Safety Report 11505585 (Version 1)
Quarter: 2015Q3

REPORT INFORMATION
  Report Type: Spontaneous
  Country: US (occurrence: None)
  Receive Date: 20150914
  Receipt Date: 20150914
  Transmission Date: 20151125
  Serious: Yes (Death)
  Sender: FDA-Public Use
  Company Number: None

PATIENT
  Age: 64 Year
  Sex: Female
  Weight: 81.65 kg

DRUGS (7)
  1. HEPARIN (SUB Q) [Concomitant]
  2. VANCOMYCIN [Concomitant]
     Active Substance: VANCOMYCIN
  3. ZOSYN [Concomitant]
     Active Substance: PIPERACILLIN SODIUM\TAZOBACTAM SODIUM
  4. RIFAXIMIN [Concomitant]
     Active Substance: RIFAXIMIN
  5. INSULIN [Concomitant]
     Active Substance: INSULIN NOS
  6. HARVONI [Suspect]
     Active Substance: LEDIPASVIR\SOFOSBUVIR
     Indication: HEPATITIS C
     Dosage: 90/400 MG??24-NOV-2014 - 12-FEB-2014
     Route: 048
     Dates: start: 20141124
  7. LACTULOSE. [Concomitant]
     Active Substance: LACTULOSE

REACTIONS (3)
  - Spinal cord compression [None]
  - Paraplegia [None]
  - Spinal cord injury [None]
